FAERS Safety Report 5280151-2 (Version None)
Quarter: 2007Q1

REPORT INFORMATION
  Report Type: 
  Country: None (occurrence: None)
  Receive Date: 20070326
  Receipt Date: 20070326
  Transmission Date: 20070707
  Serious: No
  Sender: FDA-Public Use
  Company Number: None

PATIENT
  Sex: Female
  Weight: 102.0593 kg

DRUGS (1)
  1. TOPAMAX [Suspect]
     Indication: OBESITY
     Dosage: 50MG  BID PO
     Route: 048
     Dates: start: 20070115, end: 20070221

REACTIONS (5)
  - AMNESIA [None]
  - COGNITIVE DISORDER [None]
  - CONFUSIONAL STATE [None]
  - IMPAIRED WORK ABILITY [None]
  - MENTAL DISORDER [None]
